FAERS Safety Report 19941087 (Version 1)
Quarter: 2021Q4

REPORT INFORMATION
  Report Type: Spontaneous
  Country: DE (occurrence: DE)
  Receive Date: 20211012
  Receipt Date: 20211012
  Transmission Date: 20220303
  Serious: Yes (Hospitalization)
  Sender: FDA-Public Use
  Company Number: DE-DCGMA-21189270

PATIENT
  Age: 60 Year
  Sex: Male
  Weight: 88 kg

DRUGS (4)
  1. IRINOTECAN [Suspect]
     Active Substance: IRINOTECAN
     Indication: Colorectal cancer
     Dosage: 288 MILLIGRAM
     Route: 042
     Dates: start: 20200915, end: 20201117
  2. FLUOROURACIL [Concomitant]
     Active Substance: FLUOROURACIL
     Indication: Colorectal cancer
     Dosage: 4800 MILLIGRAM
     Route: 042
     Dates: start: 20200915, end: 20201117
  3. BEVACIZUMAB [Concomitant]
     Active Substance: BEVACIZUMAB
     Indication: Colorectal cancer
     Dosage: 410 MILLIGRAM
     Route: 042
     Dates: start: 20200915, end: 20201117
  4. LEUCOVORIN [Concomitant]
     Active Substance: LEUCOVORIN
     Indication: Colorectal cancer
     Dosage: 300 MILLIGRAM
     Route: 042
     Dates: start: 20200915, end: 20201117

REACTIONS (4)
  - Oesophagitis [Unknown]
  - Gastritis [Unknown]
  - Nausea [Unknown]
  - Vomiting [Unknown]

NARRATIVE: CASE EVENT DATE: 20201119
